FAERS Safety Report 22318453 (Version 1)
Quarter: 2023Q2

REPORT INFORMATION
  Report Type: Spontaneous
  Country: CN (occurrence: None)
  Receive Date: 20230515
  Receipt Date: 20230515
  Transmission Date: 20230722
  Serious: Yes (Other)
  Sender: FDA-Public Use
  Company Number: CN-ROCHE-3348609

PATIENT
  Age: 56 Year
  Sex: Female
  Weight: 61.5 kg

DRUGS (2)
  1. PERJETA [Suspect]
     Active Substance: PERTUZUMAB
     Indication: Breast cancer
     Route: 041
     Dates: start: 20230206, end: 20230206
  2. HERCEPTIN [Suspect]
     Active Substance: TRASTUZUMAB
     Indication: Breast cancer
     Route: 041
     Dates: start: 20230206, end: 20230206

REACTIONS (5)
  - Pyrexia [Recovering/Resolving]
  - Vomiting [Recovered/Resolved]
  - Hypertension [Recovering/Resolving]
  - Feeling cold [Recovered/Resolved]
  - Nausea [Recovered/Resolved]

NARRATIVE: CASE EVENT DATE: 20230206
